FAERS Safety Report 10215368 (Version 2)
Quarter: 2014Q2

REPORT INFORMATION
  Report Type: Spontaneous
  Country: TR (occurrence: TR)
  Receive Date: 20140604
  Receipt Date: 20140623
  Transmission Date: 20141212
  Serious: Yes (Life-Threatening, Hospitalization)
  Sender: FDA-Public Use
  Company Number: TR-009507513-1406TUR000182

PATIENT
  Age: 51 Year
  Sex: Male
  Weight: 96 kg

DRUGS (5)
  1. BOCEPREVIR [Suspect]
     Indication: CHRONIC HEPATITIS C
     Dosage: TOTAL DAILY DOSE OF 2400 MG
     Route: 048
     Dates: start: 201405
  2. BOCEPREVIR [Suspect]
     Dosage: TOTAL DAILY DOSE OF 2400 MG
     Route: 048
     Dates: start: 20140325, end: 201405
  3. RIBAVIRIN [Suspect]
     Indication: CHRONIC HEPATITIS C
     Dosage: TOTAL DAILY DOSE OF 1200 MG
     Route: 048
     Dates: start: 20140226
  4. PEGINTERFERON ALFA-2B [Suspect]
     Indication: CHRONIC HEPATITIS C
     Dosage: 100 MG/WEEK, FREQUENCY: 1X1
     Route: 058
     Dates: start: 20140226
  5. RANITIDINE [Concomitant]
     Dosage: 1 X 1,150MG/DAY

REACTIONS (3)
  - Syncope [Recovered/Resolved]
  - Pyrexia [Not Recovered/Not Resolved]
  - Mitral valve disease [Unknown]
